FAERS Safety Report 4320825-0 (Version None)
Quarter: 2004Q1

REPORT INFORMATION
  Report Type: 
  Country: None (occurrence: None)
  Receive Date: 20040315
  Receipt Date: 20030116
  Transmission Date: 20041129
  Serious: Yes (Hospitalization)
  Sender: FDA-Public Use
  Company Number: PHEH2003US00792

PATIENT
  Age: 17 Year
  Sex: Female

DRUGS (3)
  1. TRILEPTAL [Suspect]
     Indication: AFFECTIVE DISORDER
     Dosage: 75 MG, QD, ORAL
     Route: 048
     Dates: start: 20021201
  2. ADDERALL (DEXAMFETAMINE SULFATE, DEXAMFETAMINE SACCHARATE, AMFETAMINE [Concomitant]
  3. ZOLOFT [Concomitant]

REACTIONS (2)
  - CONVULSION [None]
  - FATIGUE [None]
